FAERS Safety Report 14341462 (Version 1)
Quarter: 2018Q1

REPORT INFORMATION
  Report Type: Report from Study
  Country: US (occurrence: US)
  Receive Date: 20180102
  Receipt Date: 20180102
  Transmission Date: 20180509
  Serious: No
  Sender: FDA-Public Use
  Company Number: US-AMGEN-USASL2017192134

PATIENT
  Age: 56 Year
  Sex: Female

DRUGS (1)
  1. ENBREL [Suspect]
     Active Substance: ETANERCEPT
     Indication: PSORIATIC ARTHROPATHY
     Dosage: UNK
     Route: 065
     Dates: end: 2017

REACTIONS (13)
  - Liver disorder [Unknown]
  - Wound [Unknown]
  - Nausea [Unknown]
  - Dehydration [Unknown]
  - Rash papular [Unknown]
  - Loss of personal independence in daily activities [Unknown]
  - Mouth swelling [Not Recovered/Not Resolved]
  - Weight decreased [Unknown]
  - Decreased immune responsiveness [Unknown]
  - Gingival swelling [Not Recovered/Not Resolved]
  - Decreased appetite [Unknown]
  - Oral pain [Not Recovered/Not Resolved]
  - Gingival pain [Not Recovered/Not Resolved]

NARRATIVE: CASE EVENT DATE: 2017
